FAERS Safety Report 9530436 (Version 1)
Quarter: 2013Q3

REPORT INFORMATION
  Report Type: Spontaneous
  Country: US (occurrence: US)
  Receive Date: 20130918
  Receipt Date: 20130918
  Transmission Date: 20140515
  Serious: No
  Sender: FDA-Public Use
  Company Number: US-009507513-1309USA005602

PATIENT
  Sex: Male

DRUGS (2)
  1. VICTRELIS [Suspect]
     Dosage: UNK
     Route: 048
  2. VICTRELIS [Suspect]
     Dosage: UNK
     Route: 048
     Dates: start: 20121125

REACTIONS (1)
  - Drug ineffective [Recovered/Resolved]
